FAERS Safety Report 8318113-0 (Version None)
Quarter: 2012Q2

REPORT INFORMATION
  Report Type: 
  Country: None (occurrence: None)
  Receive Date: 20120427
  Receipt Date: 20120413
  Transmission Date: 20120825
  Serious: Yes (Other)
  Sender: FDA-Public Use
  Company Number: BR-ROCHE-1059937

PATIENT
  Weight: 60 kg

DRUGS (15)
  1. MABTHERA [Suspect]
     Indication: RHEUMATOID ARTHRITIS
     Dosage: TOTAL DOSE: 1000 MG/ML
     Route: 042
     Dates: start: 20100101
  2. MABTHERA [Suspect]
     Indication: SCLERODERMA
     Dosage: TOTAL DOSE: 1000 MG/ML
     Route: 042
     Dates: start: 20120115
  3. NPH INSULIN [Concomitant]
     Dosage: 50 IU IN THE MORNING AND 30 IU IN LUNCH TIME AND DINNER DAILY
  4. CILOSTAZOL [Concomitant]
  5. LINSEED OIL [Concomitant]
  6. URSACOL [Concomitant]
  7. LEVOTHYROXINE SODIUM [Concomitant]
     Indication: HYPERTHYROIDISM
  8. ATENOLOL [Concomitant]
     Indication: CARDIAC DISORDER
  9. CLONAZEPAM [Concomitant]
  10. METFORMIN HCL [Concomitant]
  11. PREDNISONE [Concomitant]
  12. REGULAR INSULIN [Concomitant]
  13. OMEPRAZOLE [Concomitant]
  14. LOVAZA [Concomitant]
  15. BREWERS YEAST [Concomitant]

REACTIONS (5)
  - WEIGHT DECREASED [None]
  - INFECTION [None]
  - PAIN [None]
  - BONE MARROW DISORDER [None]
  - INSOMNIA [None]
